FAERS Safety Report 9331151 (Version 2)
Quarter: 2013Q4

REPORT INFORMATION
  Report Type: Spontaneous
  Country: IT (occurrence: IT)
  Receive Date: 20130605
  Receipt Date: 20131119
  Transmission Date: 20140711
  Serious: Yes (Hospitalization)
  Sender: FDA-Public Use
  Company Number: PHHY2013IT054997

PATIENT
  Sex: Male

DRUGS (4)
  1. METHOTREXATE [Suspect]
     Indication: ACUTE LYMPHOCYTIC LEUKAEMIA
     Dosage: 12 MG, QD
     Route: 037
     Dates: start: 20130429, end: 20130429
  2. CITARABINA [Concomitant]
  3. EUTIROX [Concomitant]
  4. MERCAPTOPURINE [Concomitant]

REACTIONS (2)
  - Dyslexia [Recovered/Resolved]
  - Dysphagia [Recovered/Resolved]
